FAERS Safety Report 8943951 (Version 3)
Quarter: 2015Q2

REPORT INFORMATION
  Report Type: Spontaneous
  Country: US (occurrence: US)
  Receive Date: 20121204
  Receipt Date: 20150417
  Transmission Date: 20150821
  Serious: No
  Sender: FDA-Public Use
  Company Number: US-ASTRAZENECA-1998AU04151

PATIENT
  Age: 53 Year
  Sex: Female
  Weight: 84.4 kg

DRUGS (36)
  1. SYMBICORT [Suspect]
     Active Substance: BUDESONIDE\FORMOTEROL FUMARATE DIHYDRATE
     Dosage: 160/4.5, 320 MCG,  2 PUFFS BID
     Route: 055
  2. XYZAL [Concomitant]
     Active Substance: LEVOCETIRIZINE DIHYDROCHLORIDE
     Dosage: MONTH
     Route: 065
  3. FUROSEMIDE. [Concomitant]
     Active Substance: FUROSEMIDE
     Route: 065
  4. POTASSIUM CHLORIDE. [Concomitant]
     Active Substance: POTASSIUM CHLORIDE
     Route: 048
  5. METHYLPREDNISOLONE. [Concomitant]
     Active Substance: METHYLPREDNISOLONE
     Dates: end: 20071001
  6. PULMICORT TURBUHALER [Suspect]
     Active Substance: BUDESONIDE
     Indication: ASTHMA
     Route: 055
     Dates: start: 19980512
  7. PULMICORT TURBUHALER [Suspect]
     Active Substance: BUDESONIDE
     Indication: ASTHMA
     Route: 055
  8. MEDROL [Concomitant]
     Active Substance: METHYLPREDNISOLONE
     Indication: MULTIPLE ALLERGIES
     Dosage: DOSE: 16 MG TOTAL DAILY DOSE: 16 MG
     Route: 048
     Dates: start: 19980518
  9. POTASSIUM [Concomitant]
     Active Substance: POTASSIUM
     Route: 065
  10. BONIVA [Concomitant]
     Active Substance: IBANDRONATE SODIUM
     Dosage: MONTH
     Route: 065
  11. BENADRYL [Concomitant]
     Active Substance: DIPHENHYDRAMINE HYDROCHLORIDE
  12. ACCOLATE [Concomitant]
     Active Substance: ZAFIRLUKAST
     Indication: ASTHMA
     Route: 048
  13. MEDROL [Concomitant]
     Active Substance: METHYLPREDNISOLONE
     Indication: ASTHMA
     Dosage: DOSE: 16 MG TOTAL DAILY DOSE: 16 MG
     Route: 048
     Dates: start: 19980518
  14. PROVENTIL [Concomitant]
     Active Substance: ALBUTEROL
     Indication: ASTHMA
     Dosage: AS REQUIRED
     Route: 065
  15. PULMICORT TURBUHALER [Suspect]
     Active Substance: BUDESONIDE
     Indication: ASTHMA
     Dosage: 90MCG, 2 PUFFS BID PRN.
     Route: 055
  16. LISINOPRIL. [Suspect]
     Active Substance: LISINOPRIL
     Route: 048
  17. LASIX [Concomitant]
     Active Substance: FUROSEMIDE
     Indication: SWELLING
     Route: 048
  18. MEDROL [Concomitant]
     Active Substance: METHYLPREDNISOLONE
     Indication: MULTIPLE ALLERGIES
     Dosage: DOSE: 20 MG TOTAL DAILY DOSE: 20 MG
     Route: 048
     Dates: start: 19980513, end: 19980517
  19. MEDROL [Concomitant]
     Active Substance: METHYLPREDNISOLONE
     Indication: MULTIPLE ALLERGIES
     Route: 048
     Dates: end: 19980427
  20. MEDROL [Concomitant]
     Active Substance: METHYLPREDNISOLONE
     Indication: ASTHMA
     Dosage: DOSE: 20 MG TOTAL DAILY DOSE: 20 MG
     Route: 048
     Dates: start: 19980513, end: 19980517
  21. METHYLDOPA. [Concomitant]
     Active Substance: METHYLDOPA
     Route: 048
  22. PEPCID [Concomitant]
     Active Substance: FAMOTIDINE
     Route: 065
  23. SINGULAIR [Concomitant]
     Active Substance: MONTELUKAST SODIUM
     Route: 065
  24. EPIPEN [Concomitant]
     Active Substance: EPINEPHRINE
     Dosage: AS REQUIRED
     Route: 065
  25. ALBUTEROL. [Concomitant]
     Active Substance: ALBUTEROL
     Dosage: Q4H
     Route: 065
  26. OCEAN SALINE NASAL SPRAY [Concomitant]
     Active Substance: SODIUM CHLORIDE
     Route: 055
  27. AZMACORT [Concomitant]
     Active Substance: TRIAMCINOLONE ACETONIDE
     Indication: ASTHMA
     Dosage: DOSE: 2  TOTAL DAILY DOSE: 8
     Route: 055
  28. MEDROL [Concomitant]
     Active Substance: METHYLPREDNISOLONE
     Indication: ASTHMA
     Dosage: DOSE: 40 MG TOTAL DAILY DOSE: 40 MG
     Route: 048
     Dates: start: 19980428
  29. LO-OVRAL [Concomitant]
     Route: 048
     Dates: end: 20070611
  30. RHINOCORT AQUA [Suspect]
     Active Substance: BUDESONIDE
     Route: 045
  31. MEDROL [Concomitant]
     Active Substance: METHYLPREDNISOLONE
     Indication: ASTHMA
     Route: 048
     Dates: end: 19980427
  32. MEDROL [Concomitant]
     Active Substance: METHYLPREDNISOLONE
     Indication: MULTIPLE ALLERGIES
     Dosage: DOSE: 40 MG TOTAL DAILY DOSE: 40 MG
     Route: 048
     Dates: start: 19980428
  33. SEREVENT DISKUS [Concomitant]
     Active Substance: SALMETEROL XINAFOATE
     Indication: ASTHMA
     Dosage: DOSE: 2  TOTAL DAILY DOSE: 4
     Route: 055
  34. TILADE [Concomitant]
     Active Substance: NEDOCROMIL SODIUM
     Indication: ASTHMA
     Dosage: TWO PUFFS FOUR TIMES A DAY
     Route: 055
  35. PROAIR HFA [Concomitant]
     Active Substance: ALBUTEROL SULFATE
     Route: 065
  36. XALATAN [Concomitant]
     Active Substance: LATANOPROST
     Route: 065
     Dates: end: 20061214

REACTIONS (4)
  - Generalised oedema [Not Recovered/Not Resolved]
  - Asthma [Unknown]
  - Drug hypersensitivity [Unknown]
  - Off label use [Unknown]

NARRATIVE: CASE EVENT DATE: 19980515
